FAERS Safety Report 19869085 (Version 3)
Quarter: 2021Q4

REPORT INFORMATION
  Report Type: Report from Study
  Country: US (occurrence: US)
  Receive Date: 20210923
  Receipt Date: 20211109
  Transmission Date: 20220303
  Serious: Yes (Hospitalization, Other)
  Sender: FDA-Public Use
  Company Number: US-ABBVIE-21K-163-4088928-00

PATIENT
  Age: 75 Year
  Sex: Female

DRUGS (3)
  1. RINVOQ [Suspect]
     Active Substance: UPADACITINIB
     Indication: Rheumatoid arthritis
     Route: 048
     Dates: start: 20201015, end: 202107
  2. RINVOQ [Suspect]
     Active Substance: UPADACITINIB
     Route: 048
     Dates: start: 20210724
  3. PFIZER-BIONTECH COVID-19 VACCINE [Concomitant]
     Active Substance: TOZINAMERAN
     Indication: COVID-19 immunisation
     Route: 030

REACTIONS (21)
  - Shoulder arthroplasty [Not Recovered/Not Resolved]
  - Arthralgia [Recovering/Resolving]
  - Joint range of motion decreased [Not Recovered/Not Resolved]
  - Effusion [Not Recovered/Not Resolved]
  - Knee arthroplasty [Not Recovered/Not Resolved]
  - Bone disorder [Recovered/Resolved]
  - Periarthritis [Not Recovered/Not Resolved]
  - Loss of personal independence in daily activities [Unknown]
  - Osteoarthritis [Unknown]
  - Bone disorder [Unknown]
  - Peripheral swelling [Recovered/Resolved]
  - Trigger finger [Not Recovered/Not Resolved]
  - Muscle strain [Unknown]
  - Chills [Unknown]
  - Cyanosis [Unknown]
  - Throat irritation [Unknown]
  - Post procedural complication [Not Recovered/Not Resolved]
  - Procedural pain [Not Recovered/Not Resolved]
  - Joint range of motion decreased [Not Recovered/Not Resolved]
  - Arthralgia [Recovered/Resolved]
  - Sinusitis [Not Recovered/Not Resolved]

NARRATIVE: CASE EVENT DATE: 20201101
